FAERS Safety Report 20873028 (Version 2)
Quarter: 2022Q2

REPORT INFORMATION
  Report Type: Spontaneous
  Country: GB (occurrence: GB)
  Receive Date: 20220525
  Receipt Date: 20220607
  Transmission Date: 20220721
  Serious: Yes (Disabling, Other)
  Sender: FDA-Public Use
  Company Number: GB-MHRA-MED-202205161700097090-KTULS

PATIENT
  Age: 23 Year
  Sex: Female

DRUGS (3)
  1. HYDROCORTISONE SODIUM SUCCINATE [Suspect]
     Active Substance: HYDROCORTISONE SODIUM SUCCINATE
     Dosage: UNK, 2X/DAY (TWICE A DAY FOR 12 WEEKS)
     Dates: start: 202201, end: 202203
  2. BETNOVATE [Suspect]
     Active Substance: BETAMETHASONE
     Dosage: UNK
     Dates: start: 202201, end: 202203
  3. ELOCON [Suspect]
     Active Substance: MOMETASONE FUROATE
     Dosage: UNK
     Dates: start: 202201, end: 202203

REACTIONS (2)
  - Steroid withdrawal syndrome [Not Recovered/Not Resolved]
  - Medication error [Unknown]

NARRATIVE: CASE EVENT DATE: 20220101
